FAERS Safety Report 25514718 (Version 1)
Quarter: 2025Q3

REPORT INFORMATION
  Report Type: Spontaneous
  Country: US (occurrence: US)
  Receive Date: 20250703
  Receipt Date: 20250703
  Transmission Date: 20251020
  Serious: Yes (Death)
  Sender: TAIHO ONCOLOGY INC
  Company Number: US-TAIHOP-2025-007021

PATIENT
  Sex: Female

DRUGS (1)
  1. INQOVI [Suspect]
     Active Substance: CEDAZURIDINE\DECITABINE
     Indication: Myelodysplastic syndrome with ringed sideroblasts
     Dosage: 135MG (DECITABINE 35 MG + CEDAZURIDINE 100 MG) ON DAYS 1 THROUGH 5 OF EACH 28-DAY TREATMENT CYCLE.?C
     Route: 048

REACTIONS (1)
  - Death [Fatal]
